FAERS Safety Report 5314745-2 (Version None)
Quarter: 2007Q2

REPORT INFORMATION
  Report Type: 
  Country: None (occurrence: None)
  Receive Date: 20070427
  Receipt Date: 20070412
  Transmission Date: 20071010
  Serious: Yes (Hospitalization, Other)
  Sender: FDA-Public Use
  Company Number: 2007US-06879

PATIENT
  Age: 56 Year
  Sex: Female

DRUGS (1)
  1. PSEUDOEPHEDRINE HYDROCHLORIDE [Suspect]
     Indication: RHINITIS ALLERGIC

REACTIONS (6)
  - BLOOD SODIUM DECREASED [None]
  - HYPERTENSION [None]
  - INSOMNIA [None]
  - MANIA [None]
  - SINUSITIS [None]
  - SOMNOLENCE [None]
